FAERS Safety Report 9078524 (Version 5)
Quarter: 2014Q1

REPORT INFORMATION
  Report Type: Report from Study
  Country: US (occurrence: US)
  Receive Date: 20130130
  Receipt Date: 20140123
  Transmission Date: 20141002
  Serious: Yes (Hospitalization)
  Sender: FDA-Public Use
  Company Number: US-JNJFOC-20130114131

PATIENT
  Age: 12 Year
  Sex: Male
  Weight: 33.4 kg

DRUGS (5)
  1. INFLIXIMAB, RECOMBINANT [Suspect]
     Indication: CROHN^S DISEASE
     Route: 042
     Dates: start: 200902
  2. CHOLECALCIFEROL [Concomitant]
  3. TUMS [Concomitant]
  4. MULTIVITAMINS [Concomitant]
     Route: 065
  5. FERROUS SULPHATE [Concomitant]
     Route: 065

REACTIONS (2)
  - Compartment syndrome [Recovered/Resolved]
  - Lower limb fracture [Recovered/Resolved with Sequelae]
